FAERS Safety Report 7108098-7 (Version None)
Quarter: 2010Q4

REPORT INFORMATION
  Report Type: 
  Country: None (occurrence: None)
  Receive Date: 20101117
  Receipt Date: 20101109
  Transmission Date: 20110411
  Serious: Yes (Hospitalization)
  Sender: FDA-Public Use
  Company Number: KR-ASTRAZENECA-2010SE53085

PATIENT
  Age: 69 Year
  Sex: Male

DRUGS (2)
  1. BICALUTAMIDE [Suspect]
     Indication: PROSTATE CANCER METASTATIC
     Route: 048
  2. LEUPROLIDE ACETATE [Suspect]
     Indication: PROSTATE CANCER METASTATIC
     Route: 058

REACTIONS (3)
  - DIABETES MELLITUS [None]
  - DIABETIC HYPEROSMOLAR COMA [None]
  - RENAL FAILURE ACUTE [None]
